FAERS Safety Report 11326062 (Version 1)
Quarter: 2015Q3

REPORT INFORMATION
  Report Type: Spontaneous
  Country: US (occurrence: US)
  Receive Date: 20150731
  Receipt Date: 20150731
  Transmission Date: 20151125
  Serious: No
  Sender: FDA-Public Use
  Company Number: US-009507513-1507USA011765

PATIENT
  Sex: Female

DRUGS (2)
  1. CISPLATIN. [Concomitant]
     Active Substance: CISPLATIN
  2. EMEND [Suspect]
     Active Substance: APREPITANT
     Indication: NAUSEA

REACTIONS (1)
  - Drug intolerance [Unknown]
